FAERS Safety Report 7336369-8 (Version None)
Quarter: 2011Q1

REPORT INFORMATION
  Report Type: 
  Country: None (occurrence: None)
  Receive Date: 20110307
  Receipt Date: 20110302
  Transmission Date: 20110831
  Serious: Yes (Other)
  Sender: FDA-Public Use
  Company Number: US-PFIZER INC-2010100380

PATIENT
  Sex: Male

DRUGS (2)
  1. LIPITOR [Suspect]
     Dosage: 10 MG DAILY
     Route: 048
     Dates: start: 20060401, end: 20070301
  2. LIPITOR [Suspect]
     Dosage: UNK
     Dates: start: 20070401

REACTIONS (10)
  - HOSTILITY [None]
  - BALANCE DISORDER [None]
  - FATIGUE [None]
  - DEPRESSION [None]
  - NEUROPATHY PERIPHERAL [None]
  - COGNITIVE DISORDER [None]
  - EXECUTIVE DYSFUNCTION [None]
  - DISORIENTATION [None]
  - IRRITABILITY [None]
  - AMNESIA [None]
